FAERS Safety Report 24183110 (Version 1)
Quarter: 2024Q3

REPORT INFORMATION
  Report Type: Spontaneous
  Country: CN (occurrence: CN)
  Receive Date: 20240807
  Receipt Date: 20240807
  Transmission Date: 20241017
  Serious: Yes (Death, Other)
  Sender: SANDOZ
  Company Number: CN-SANDOZ-SDZ2024CN007926

PATIENT

DRUGS (1)
  1. VORICONAZOLE [Suspect]
     Active Substance: VORICONAZOLE
     Indication: Bronchopulmonary aspergillosis
     Dosage: UNK
     Route: 065

REACTIONS (7)
  - Death [Fatal]
  - Renal impairment [Unknown]
  - Pancytopenia [Unknown]
  - Hypokalaemia [Unknown]
  - Hepatic function abnormal [Unknown]
  - Visual impairment [Unknown]
  - Drug ineffective [Unknown]
